FAERS Safety Report 6354666-X (Version None)
Quarter: 2009Q3

REPORT INFORMATION
  Report Type: 
  Country: None (occurrence: None)
  Receive Date: 20090914
  Receipt Date: 20090901
  Transmission Date: 20100115
  Serious: Yes (Hospitalization)
  Sender: FDA-Public Use
  Company Number: GB-ASTRAZENECA-2009SE10863

PATIENT
  Sex: Female

DRUGS (1)
  1. TENORETIC 100 [Suspect]
     Dosage: 75 TABLETS OF 100+25 MG
     Route: 048

REACTIONS (1)
  - OVERDOSE [None]
